FAERS Safety Report 24798245 (Version 1)
Quarter: 2025Q1

REPORT INFORMATION
  Report Type: Spontaneous
  Country: US (occurrence: US)
  Receive Date: 20250102
  Receipt Date: 20250102
  Transmission Date: 20250409
  Serious: Yes (Other)
  Sender: SANDOZ
  Company Number: US-SANDOZ-SDZ2024US106385

PATIENT
  Sex: Male

DRUGS (3)
  1. AZITHROMYCIN [Suspect]
     Active Substance: AZITHROMYCIN
     Indication: Mycobacterium avium complex infection
     Dosage: 500 MG, QD
     Route: 065
     Dates: start: 202402
  2. ETHAMBUTOL [Suspect]
     Active Substance: ETHAMBUTOL HYDROCHLORIDE
     Indication: Mycobacterium avium complex infection
     Dosage: 800 MG, QD
     Route: 065
     Dates: start: 202402, end: 20241208
  3. RIFABUTIN [Suspect]
     Active Substance: RIFABUTIN
     Indication: Mycobacterium avium complex infection
     Dosage: 150 MG, BID
     Route: 065
     Dates: start: 202402

REACTIONS (1)
  - Optic neuritis [Unknown]

NARRATIVE: CASE EVENT DATE: 20240101
